FAERS Safety Report 12328384 (Version 1)
Quarter: 2016Q2

REPORT INFORMATION
  Report Type: Spontaneous
  Country: JP (occurrence: JP)
  Receive Date: 20160503
  Receipt Date: 20160503
  Transmission Date: 20160815
  Serious: Yes (Other)
  Sender: FDA-Public Use
  Company Number: JP-PFIZER INC-2016232735

PATIENT
  Age: 3 Year
  Sex: Male

DRUGS (1)
  1. GENOTROPIN GOQUICK [Suspect]
     Active Substance: SOMATROPIN
     Dosage: 0.35 MG, DAILY
     Route: 058

REACTIONS (3)
  - Rhinorrhoea [Unknown]
  - Otitis media [Unknown]
  - Cough [Unknown]

NARRATIVE: CASE EVENT DATE: 201604
